FAERS Safety Report 11125625 (Version 1)
Quarter: 2015Q2

REPORT INFORMATION
  Report Type: Spontaneous
  Country: JP (occurrence: JP)
  Receive Date: 20150520
  Receipt Date: 20150520
  Transmission Date: 20150821
  Serious: Yes (Hospitalization)
  Sender: FDA-Public Use
  Company Number: JP-TEVA-563422ISR

PATIENT
  Age: 72 Year
  Sex: Female

DRUGS (4)
  1. VANCOMYCIN [Concomitant]
     Active Substance: VANCOMYCIN
     Route: 065
  2. ACICLOVIR [Concomitant]
     Active Substance: ACYCLOVIR
     Indication: HERPES SIMPLEX
  3. FILGRASTIM [Suspect]
     Active Substance: FILGRASTIM
     Indication: NEUTROPENIA
     Dosage: 150 MICROGRAM DAILY;
     Route: 058
  4. DORIPENEM [Concomitant]
     Active Substance: DORIPENEM
     Route: 065

REACTIONS (2)
  - Pyrexia [Unknown]
  - Granulomatous dermatitis [Recovered/Resolved]
